FAERS Safety Report 15526116 (Version 2)
Quarter: 2018Q4

REPORT INFORMATION
  Report Type: Spontaneous
  Country: BR (occurrence: BR)
  Receive Date: 20181018
  Receipt Date: 20181117
  Transmission Date: 20190205
  Serious: Yes (Other)
  Sender: FDA-Public Use
  Company Number: BR-TORRENT-00004655

PATIENT
  Age: 49 Year
  Sex: Female
  Weight: 89 kg

DRUGS (4)
  1. LAMITOR CD [Suspect]
     Active Substance: LAMOTRIGINE
     Indication: SEIZURE
     Dosage: 3 TABLETS DAILY
     Route: 048
     Dates: start: 20180915, end: 20180928
  2. RIVOTRIL [Concomitant]
     Active Substance: CLONAZEPAM
     Indication: FEELING OF RELAXATION
     Dosage: 1 TAB AT NIGHT?MORE THAN 20 YEARS
     Route: 048
  3. TEGRETOL [Concomitant]
     Active Substance: CARBAMAZEPINE
     Indication: SEIZURE
     Dosage: 3 TABLETS DAILY
     Route: 048
  4. LAMITOR [Suspect]
     Active Substance: LAMOTRIGINE
     Indication: SEIZURE
     Dosage: HAD BEEN TAKING 100 MG 4 TO 5 YEAR AGO
     Dates: end: 2018

REACTIONS (4)
  - Product dispensing error [Unknown]
  - Seizure [Recovered/Resolved]
  - Drug ineffective [Unknown]
  - Lip discolouration [Recovered/Resolved]

NARRATIVE: CASE EVENT DATE: 20180915
